FAERS Safety Report 7725933-X (Version None)
Quarter: 2011Q3

REPORT INFORMATION
  Report Type: 
  Country: None (occurrence: None)
  Receive Date: 20110902
  Receipt Date: 20110823
  Transmission Date: 20111222
  Serious: Yes (Hospitalization)
  Sender: FDA-Public Use
  Company Number: DE-JNJFOC-20110809424

PATIENT
  Weight: 100 kg

DRUGS (4)
  1. STELARA [Suspect]
     Route: 058
     Dates: start: 20110314
  2. STELARA [Suspect]
     Indication: PSORIASIS
     Route: 058
     Dates: start: 20101220
  3. STELARA [Suspect]
     Route: 058
     Dates: start: 20110606
  4. RAMIPRIL [Concomitant]
     Route: 048

REACTIONS (2)
  - ACUTE CORONARY SYNDROME [None]
  - HYPERTENSIVE CRISIS [None]
